FAERS Safety Report 5291495-2 (Version None)
Quarter: 2007Q2

REPORT INFORMATION
  Report Type: 
  Country: None (occurrence: None)
  Receive Date: 20070403
  Receipt Date: 20070329
  Transmission Date: 20071010
  Serious: Yes (Other)
  Sender: FDA-Public Use
  Company Number: 153745USA

PATIENT
  Age: 48 Year
  Sex: Female

DRUGS (6)
  1. COPAXONE [Suspect]
     Indication: MULTIPLE SCLEROSIS
     Dosage: (20 MG), SUBCUTANEOUS
     Route: 058
     Dates: start: 20020101
  2. VALSARTAN [Concomitant]
  3. ATORVASTATIN CALCIUM [Concomitant]
  4. KARVEA HCT [Concomitant]
  5. METFORMIN HCL [Concomitant]
  6. ACETYLSALICYLIC ACID SRT [Concomitant]

REACTIONS (1)
  - BENIGN PERITONEAL NEOPLASM [None]
